FAERS Safety Report 25612213 (Version 2)
Quarter: 2025Q4

REPORT INFORMATION
  Report Type: Spontaneous
  Country: US (occurrence: US)
  Receive Date: 20250728
  Receipt Date: 20251019
  Transmission Date: 20260117
  Serious: No
  Sender: SANOFI AVENTIS
  Company Number: US-SA-2025SA211799

PATIENT
  Age: 76 Year
  Sex: Male

DRUGS (12)
  1. ELOCTATE [Suspect]
     Active Substance: EFMOROCTOCOG ALFA
     Indication: Factor VIII deficiency
     Dosage: 750 U (675-825) EVERY 5-8 DAYS FOR PROPHYLAXIS
     Route: 042
     Dates: start: 202505
  2. ELOCTATE [Suspect]
     Active Substance: EFMOROCTOCOG ALFA
     Indication: Factor VIII deficiency
     Dosage: 750 U (675-825) EVERY 5-8 DAYS FOR PROPHYLAXIS
     Route: 042
     Dates: start: 202505
  3. ELOCTATE [Suspect]
     Active Substance: EFMOROCTOCOG ALFA
     Dosage: 750 U (675-825), PRN (DAILY (1X) ONCE ON DEMAND FOR A BLEED)
     Route: 042
     Dates: start: 202505
  4. ELOCTATE [Suspect]
     Active Substance: EFMOROCTOCOG ALFA
     Dosage: 750 U (675-825), PRN (DAILY (1X) ONCE ON DEMAND FOR A BLEED)
     Route: 042
     Dates: start: 202505
  5. ELOCTATE [Suspect]
     Active Substance: EFMOROCTOCOG ALFA
     Dosage: 500 U, EVERY 5-8 DAYS FOR PROPHY DOSING
     Route: 042
     Dates: start: 202505
  6. ELOCTATE [Suspect]
     Active Substance: EFMOROCTOCOG ALFA
     Dosage: 500 U, EVERY 5-8 DAYS FOR PROPHY DOSING
     Route: 042
     Dates: start: 202505
  7. ELOCTATE [Suspect]
     Active Substance: EFMOROCTOCOG ALFA
     Dosage: 350  U, EVERY 5-8 DAYS FOR PROPHY DOSING
     Route: 042
     Dates: start: 202505
  8. ELOCTATE [Suspect]
     Active Substance: EFMOROCTOCOG ALFA
     Dosage: 350  U, EVERY 5-8 DAYS FOR PROPHY DOSING
     Route: 042
     Dates: start: 202505
  9. ELOCTATE [Suspect]
     Active Substance: EFMOROCTOCOG ALFA
     Dosage: 500 U, PRN (DAILY FOR 1 TIME ON DEMAND FOR A BLEED)
     Route: 042
     Dates: start: 202505
  10. ELOCTATE [Suspect]
     Active Substance: EFMOROCTOCOG ALFA
     Dosage: 500 U, PRN (DAILY FOR 1 TIME ON DEMAND FOR A BLEED)
     Route: 042
     Dates: start: 202505
  11. ELOCTATE [Suspect]
     Active Substance: EFMOROCTOCOG ALFA
     Dosage: 350 U, PRN (DAILY FOR 1 TIME ON DEMAND FOR A BLEED)
     Route: 042
     Dates: start: 202505
  12. ELOCTATE [Suspect]
     Active Substance: EFMOROCTOCOG ALFA
     Dosage: 350 U, PRN (DAILY FOR 1 TIME ON DEMAND FOR A BLEED)
     Route: 042
     Dates: start: 202505

REACTIONS (3)
  - Contusion [Unknown]
  - Joint instability [Unknown]
  - Haemorrhage [Unknown]

NARRATIVE: CASE EVENT DATE: 20250601
